FAERS Safety Report 9380976 (Version 1)
Quarter: 2013Q3

REPORT INFORMATION
  Report Type: Spontaneous
  Country: US (occurrence: US)
  Receive Date: 20130703
  Receipt Date: 20130703
  Transmission Date: 20140515
  Serious: Yes (Hospitalization, Other)
  Sender: FDA-Public Use
  Company Number: US-009507513-1307USA000242

PATIENT
  Age: 75 Year
  Sex: Male
  Weight: 82.99 kg

DRUGS (5)
  1. JANUVIA [Suspect]
     Indication: TYPE 2 DIABETES MELLITUS
     Dosage: 100 MG DAILY
     Route: 048
     Dates: start: 201304, end: 20130624
  2. GLYBURIDE (+) METFORMIN HYDROCHLORIDE [Concomitant]
     Dosage: 2 TABLET 2/DAY
  3. HUMALOG MIX [Concomitant]
     Dosage: 8-2/DAY
  4. TEKTURNA [Concomitant]
     Dosage: UNK, QD
  5. LESCOL [Concomitant]
     Dosage: 20 QD

REACTIONS (2)
  - Pancreatitis acute [Not Recovered/Not Resolved]
  - Abdominal pain [Not Recovered/Not Resolved]
